FAERS Safety Report 9414061 (Version 1)
Quarter: 2013Q3

REPORT INFORMATION
  Report Type: Spontaneous
  Country: None (occurrence: None)
  Receive Date: 20130709
  Receipt Date: 20130709
  Transmission Date: 20140515
  Serious: Yes (Hospitalization)
  Sender: FDA-Public Use
  Company Number: 07-AUR-00312

PATIENT
  Age: 74 Year
  Sex: Male

DRUGS (1)
  1. CIPROFLOXACIN [Suspect]
     Indication: PRODUCT USED FOR UNKNOWN INDICATION
     Dosage: 1500 MG (750MG, 2 IN 1D)

REACTIONS (4)
  - Nephrolithiasis [None]
  - Renal tubular disorder [None]
  - Renal ischaemia [None]
  - Kidney fibrosis [None]
